FAERS Safety Report 7739928-3 (Version None)
Quarter: 2011Q3

REPORT INFORMATION
  Report Type: 
  Country: None (occurrence: None)
  Receive Date: 20110909
  Receipt Date: 20110907
  Transmission Date: 20111222
  Serious: Yes (Hospitalization, Other)
  Sender: FDA-Public Use
  Company Number: PHHY2011FR56463

PATIENT
  Sex: Female
  Weight: 72 kg

DRUGS (4)
  1. AMLODIPINE BESYLATE [Concomitant]
     Dosage: UNK UKN, UNK
  2. ZOLEDRONOC ACID [Suspect]
     Indication: OSTEOPOROSIS
     Dosage: 5 MG
     Route: 042
     Dates: start: 20110125
  3. ATORVASTATIN CALCIUM [Concomitant]
     Dosage: UNK UKN, UNK
  4. FLECAINIDE ACETATE [Concomitant]
     Dosage: UNK UKN, UNK

REACTIONS (2)
  - ATRIAL FIBRILLATION [None]
  - ARRHYTHMIA [None]
